FAERS Safety Report 6839127-3 (Version None)
Quarter: 2010Q3

REPORT INFORMATION
  Report Type: 
  Country: None (occurrence: None)
  Receive Date: 20100714
  Receipt Date: 20100702
  Transmission Date: 20110219
  Serious: Yes (Hospitalization)
  Sender: FDA-Public Use
  Company Number: CA-JNJFOC-20100701675

PATIENT
  Sex: Male
  Weight: 83 kg

DRUGS (4)
  1. REMICADE [Suspect]
     Indication: COLITIS ULCERATIVE
     Route: 042
  2. PREDNISONE [Concomitant]
  3. IRON [Concomitant]
  4. LOVAZA [Concomitant]

REACTIONS (11)
  - ANAEMIA [None]
  - ARTHRALGIA [None]
  - BACK PAIN [None]
  - CHEST PAIN [None]
  - COLITIS ULCERATIVE [None]
  - FATIGUE [None]
  - FURUNCLE [None]
  - GROIN PAIN [None]
  - HYPOAESTHESIA [None]
  - JOINT SWELLING [None]
  - PULMONARY EMBOLISM [None]
